FAERS Safety Report 4871697-7 (Version None)
Quarter: 2005Q4

REPORT INFORMATION
  Report Type: 
  Country: None (occurrence: None)
  Receive Date: 20051230
  Receipt Date: 20051219
  Transmission Date: 20060501
  Serious: Yes (Hospitalization)
  Sender: FDA-Public Use
  Company Number: 2005135787

PATIENT
  Age: 73 Year
  Sex: Male
  Weight: 59 kg

DRUGS (12)
  1. EPIRUBICIN [Suspect]
     Indication: BLADDER CANCER
     Dosage: 1 N 1 WK, OTHER
     Route: 050
     Dates: start: 20050908
  2. TICLOPIDINE HCL [Concomitant]
  3. ASPIRIN [Concomitant]
  4. AMLODIPINE [Concomitant]
  5. ITOPROL                     (ISOSORBIDE MONONITRATE) [Concomitant]
  6. LASIX [Concomitant]
  7. DISOPYRAMIDE [Concomitant]
  8. RABEPRAZOLE SODIUM [Concomitant]
  9. AMOBAN (ZOPICLONE) [Concomitant]
  10. EVIPROSTAT [Concomitant]
  11. HARNAL                     (TAMSULOSIN HYDROCHLORIDE) [Concomitant]
  12. MARZULENE (SODIUM GUALENATE) [Concomitant]

REACTIONS (3)
  - BLOOD CREATINE INCREASED [None]
  - DIALYSIS [None]
  - PYREXIA [None]
